FAERS Safety Report 10076622 (Version 1)
Quarter: 2014Q2

REPORT INFORMATION
  Report Type: Spontaneous
  Country: US (occurrence: US)
  Receive Date: 20140414
  Receipt Date: 20140414
  Transmission Date: 20141212
  Serious: Yes (Congenital Anomaly)
  Sender: FDA-Public Use
  Company Number: US-FRI-1000066307

PATIENT
  Age: 0 Day
  Sex: Male

DRUGS (1)
  1. CELEXA [Suspect]
     Route: 064

REACTIONS (3)
  - Persistent foetal circulation [Unknown]
  - Neonatal respiratory failure [Unknown]
  - Laryngeal stenosis [Unknown]
